FAERS Safety Report 8966971 (Version 1)
Quarter: 2012Q4

REPORT INFORMATION
  Report Type: 
  Country: GR (occurrence: GR)
  Receive Date: 20121217
  Receipt Date: 20121217
  Transmission Date: 20130627
  Serious: Yes (Other)
  Sender: FDA-Public Use
  Company Number: PHHY2012GR076959

PATIENT
  Age: 53 Year
  Sex: Female

DRUGS (1)
  1. EXTAVIA [Suspect]
     Dosage: UNK
     Dates: start: 20100617

REACTIONS (4)
  - Central nervous system lesion [Unknown]
  - Muscular weakness [Unknown]
  - Chest pain [Unknown]
  - Back pain [Unknown]
